FAERS Safety Report 21471223 (Version 1)
Quarter: 2022Q4

REPORT INFORMATION
  Report Type: Report from Study
  Country: ZA (occurrence: ZA)
  Receive Date: 20221018
  Receipt Date: 20221018
  Transmission Date: 20230112
  Serious: Yes (Death)
  Sender: FDA-Public Use
  Company Number: ZA-NOVARTISPH-NVSC2021ZA256775

PATIENT
  Age: 59 Year
  Sex: Female

DRUGS (2)
  1. RIBOCICLIB [Suspect]
     Active Substance: RIBOCICLIB
     Indication: Breast cancer
     Dosage: 600 MG, QD (DISPERSIBLE)
     Route: 048
     Dates: start: 20210707
  2. TRAMADOL HYDROCHLORIDE [Concomitant]
     Active Substance: TRAMADOL HYDROCHLORIDE
     Indication: Pain
     Dosage: UNK
     Route: 065

REACTIONS (16)
  - Death [Fatal]
  - Chest discomfort [Recovering/Resolving]
  - Eye pruritus [Unknown]
  - Night sweats [Unknown]
  - Insomnia [Unknown]
  - Disturbance in attention [Unknown]
  - Memory impairment [Unknown]
  - Yellow skin [Unknown]
  - Injury [Unknown]
  - Palpitations [Unknown]
  - Headache [Recovering/Resolving]
  - Fatigue [Recovering/Resolving]
  - Nausea [Recovering/Resolving]
  - Constipation [Unknown]
  - Dry skin [Unknown]
  - Productive cough [Recovering/Resolving]

NARRATIVE: CASE EVENT DATE: 20210707
